FAERS Safety Report 8165466-2 (Version None)
Quarter: 2012Q1

REPORT INFORMATION
  Report Type: 
  Country: None (occurrence: None)
  Receive Date: 20120227
  Receipt Date: 20110428
  Transmission Date: 20120608
  Serious: No
  Sender: FDA-Public Use
  Company Number: US-MYLANLABS-2011S1007496

PATIENT
  Sex: Female

DRUGS (1)
  1. METOPROLOL TARTRATE [Suspect]
     Indication: BLOOD PRESSURE
     Route: 048

REACTIONS (3)
  - DRUG INEFFECTIVE [None]
  - ANGINA PECTORIS [None]
  - HEART RATE INCREASED [None]
